FAERS Safety Report 9178052 (Version 2)
Quarter: 2012Q4

REPORT INFORMATION
  Report Type: 
  Country: US (occurrence: US)
  Receive Date: 20121019
  Receipt Date: 20121030
  Transmission Date: 20130627
  Serious: Yes (Other)
  Sender: FDA-Public Use
  Company Number: US-RB-045552-12

PATIENT
  Age: 29 Year
  Sex: Female

DRUGS (1)
  1. MUCINEX MAXIMUM STRENGTH [Suspect]
     Indication: NASOPHARYNGITIS
     Dosage: Took one tablet on 09-OCT-2012 night and another tablet on 10-OCT-2012
     Route: 048
     Dates: start: 20121009

REACTIONS (6)
  - Pulmonary oedema [Not Recovered/Not Resolved]
  - Oesophageal disorder [Not Recovered/Not Resolved]
  - Dyspnoea [Not Recovered/Not Resolved]
  - Cough [Not Recovered/Not Resolved]
  - Drug hypersensitivity [Unknown]
  - Pneumothorax [Unknown]
